FAERS Safety Report 6954723-0 (Version None)
Quarter: 2010Q3

REPORT INFORMATION
  Report Type: 
  Country: None (occurrence: None)
  Receive Date: 20100829
  Receipt Date: 20100727
  Transmission Date: 20110219
  Serious: No
  Sender: FDA-Public Use
  Company Number: US-ALLERGAN-1009750US

PATIENT
  Age: 47 Year
  Sex: Female

DRUGS (2)
  1. FML FORTE [Suspect]
     Indication: DRY EYE
     Dosage: 1 GTT, QID
     Route: 047
     Dates: start: 20100723
  2. SOOTHE XTRA HYDRATION [Suspect]
     Indication: DRY EYE
     Dosage: 1 GTT, Q2HR
     Route: 047
     Dates: start: 20100723, end: 20100725

REACTIONS (3)
  - EYE IRRITATION [None]
  - EYE PAIN [None]
  - OCULAR HYPERAEMIA [None]
